FAERS Safety Report 6312687-7 (Version None)
Quarter: 2009Q3

REPORT INFORMATION
  Report Type: 
  Country: None (occurrence: None)
  Receive Date: 20090814
  Receipt Date: 20090814
  Transmission Date: 20100115
  Serious: No
  Sender: FDA-Public Use
  Company Number: None

PATIENT
  Age: 51 Year
  Sex: Male

DRUGS (1)
  1. DEPAKOTE ER [Suspect]
     Indication: MIGRAINE
     Dosage: 500 MG TWICE QD PO
     Route: 048
     Dates: start: 20090217, end: 20090320

REACTIONS (4)
  - CONDITION AGGRAVATED [None]
  - MIGRAINE [None]
  - NAUSEA [None]
  - PRODUCT SUBSTITUTION ISSUE [None]
